FAERS Safety Report 16577771 (Version 1)
Quarter: 2019Q3

REPORT INFORMATION
  Report Type: Spontaneous
  Country: AR (occurrence: AR)
  Receive Date: 20190716
  Receipt Date: 20190716
  Transmission Date: 20191004
  Serious: Yes (Other)
  Sender: FDA-Public Use
  Company Number: AR-INFO-000821

PATIENT
  Age: 82 Year
  Sex: Female

DRUGS (2)
  1. FLORATIL [Suspect]
     Active Substance: SACCHAROMYCES CEREVISIAE
     Indication: CLOSTRIDIUM DIFFICILE COLITIS
     Route: 048
     Dates: start: 201703
  2. METRONIDAZOLE. [Suspect]
     Active Substance: METRONIDAZOLE
     Indication: CLOSTRIDIUM DIFFICILE COLITIS
     Route: 065
     Dates: start: 201703

REACTIONS (1)
  - Fungaemia [Recovered/Resolved]

NARRATIVE: CASE EVENT DATE: 201709
